FAERS Safety Report 4337465-X (Version None)
Quarter: 2004Q2

REPORT INFORMATION
  Report Type: 
  Country: None (occurrence: None)
  Receive Date: 20040413
  Receipt Date: 20040413
  Transmission Date: 20050107
  Serious: Yes (Hospitalization)
  Sender: FDA-Public Use
  Company Number: None

PATIENT
  Sex: Female
  Weight: 78.0187 kg

DRUGS (2)
  1. OXCARBAZEPINE 600 MG NOVARTIS [Suspect]
     Indication: BIPOLAR DISORDER
     Dosage: 1200 MG BID ORAL
     Dates: start: 20040108, end: 20040317
  2. OXCARBAZEPINE 600 MG NOVARTIS [Suspect]
     Indication: SCHIZOAFFECTIVE DISORDER
     Dosage: 1200 MG BID ORAL
     Dates: start: 20040108, end: 20040317

REACTIONS (10)
  - AGITATION [None]
  - BLOOD SODIUM DECREASED [None]
  - BODY TEMPERATURE INCREASED [None]
  - CONDITION AGGRAVATED [None]
  - EXTRAPYRAMIDAL DISORDER [None]
  - FATIGUE [None]
  - GAIT DISTURBANCE [None]
  - IRRITABILITY [None]
  - MENTAL DISORDER [None]
  - TREMOR [None]
